FAERS Safety Report 25407962 (Version 4)
Quarter: 2025Q3

REPORT INFORMATION
  Report Type: Report from Study
  Country: CA (occurrence: CA)
  Receive Date: 20250606
  Receipt Date: 20250709
  Transmission Date: 20251021
  Serious: Yes (Other)
  Sender: ABBVIE
  Company Number: CA-ABBVIE-6308765

PATIENT
  Sex: Male

DRUGS (2)
  1. RINVOQ [Suspect]
     Active Substance: UPADACITINIB
     Indication: Colitis ulcerative
     Route: 048
  2. RINVOQ [Suspect]
     Active Substance: UPADACITINIB
     Indication: Colitis ulcerative
     Dosage: TAKE 1 TABLET (45MG) ONCE DAILY FOR 8 WEEKS THEN DECREASE TO 30MG ONCE DAILY
     Route: 048

REACTIONS (2)
  - Colitis [Recovered/Resolved]
  - Drug ineffective [Unknown]
